FAERS Safety Report 9091802 (Version 3)
Quarter: 2013Q1

REPORT INFORMATION
  Report Type: Spontaneous
  Country: DK (occurrence: DK)
  Receive Date: 20130131
  Receipt Date: 20130319
  Transmission Date: 20140127
  Serious: Yes (Death)
  Sender: FDA-Public Use
  Company Number: DK-ROCHE-1181857

PATIENT
  Sex: Male
  Weight: 93 kg

DRUGS (13)
  1. RIVOTRIL [Suspect]
     Indication: SCHIZOPHRENIA
     Route: 048
     Dates: start: 20020310, end: 20030413
  2. SEROQUEL [Suspect]
     Indication: SCHIZOPHRENIA
     Route: 048
     Dates: start: 20021011, end: 20030413
  3. TRUXAL [Suspect]
     Indication: SCHIZOPHRENIA
     Dosage: 100 OR 200 MG BID OR TID
     Route: 048
     Dates: start: 20010126, end: 20030413
  4. BURONIL [Suspect]
     Indication: SCHIZOPHRENIA
     Dosage: 50 OR 100 MG TID OR QID. HOWEVER, MAXIMUM OF 300 MG A DAY
     Route: 048
     Dates: start: 20030404, end: 20030413
  5. IMOVANE [Suspect]
     Indication: SCHIZOPHRENIA
     Route: 048
     Dates: start: 20010126, end: 20030413
  6. ZYPREXA [Suspect]
     Indication: SCHIZOPHRENIA
     Route: 048
     Dates: start: 20010129, end: 20020506
  7. CISORDINOL DEPOT [Suspect]
     Indication: SCHIZOPHRENIA
     Route: 065
     Dates: start: 20020814, end: 20020926
  8. CISORDINOL [Suspect]
     Indication: SCHIZOPHRENIA
     Dosage: DOSE: 10 OR 30 MG
     Route: 048
     Dates: start: 20010216, end: 20021029
  9. SUBUTEX [Suspect]
     Indication: PRODUCT USED FOR UNKNOWN INDICATION
     Route: 065
  10. CLONAZEPAM [Concomitant]
  11. CHLORPROTHIXENE HYDROCHLORIDE [Concomitant]
  12. MELPERONE HYDROCHLORIDE [Concomitant]
  13. ZOPICLONE [Concomitant]

REACTIONS (8)
  - Convulsion [Unknown]
  - Sudden death [Fatal]
  - Obesity [Unknown]
  - Tension [Unknown]
  - Restlessness [Unknown]
  - Vomiting [Unknown]
  - Back pain [Unknown]
  - Visual acuity reduced [Unknown]
